FAERS Safety Report 9132503 (Version 2)
Quarter: 2013Q1

REPORT INFORMATION
  Report Type: Spontaneous
  Country: US (occurrence: US)
  Receive Date: 20130301
  Receipt Date: 20130311
  Transmission Date: 20140127
  Serious: Yes (Other)
  Sender: FDA-Public Use
  Company Number: US-UCBSA-079447

PATIENT
  Age: 49 Year
  Sex: Female
  Weight: 120.45 kg

DRUGS (5)
  1. CIMZIA [Suspect]
     Indication: RHEUMATOID ARTHRITIS
     Route: 058
     Dates: start: 2012
  2. CIMZIA [Suspect]
     Indication: RHEUMATOID ARTHRITIS
     Dosage: UNKNOWN DOSE
     Route: 058
  3. METHOTREXATE [Concomitant]
  4. ARAVA [Concomitant]
  5. PLAQUENIL [Concomitant]

REACTIONS (7)
  - Ankle operation [Recovered/Resolved]
  - Influenza like illness [Recovering/Resolving]
  - Pain [Recovering/Resolving]
  - Injection site bruising [Recovering/Resolving]
  - Dyspnoea [Recovering/Resolving]
  - Anxiety [Recovering/Resolving]
  - Panic attack [Recovering/Resolving]
